FAERS Safety Report 8711425 (Version 2)
Quarter: 2012Q4

REPORT INFORMATION
  Report Type: 
  Country: US (occurrence: US)
  Receive Date: 20120807
  Receipt Date: 20120911
  Transmission Date: 20130627
  Serious: Yes (Hospitalization, Other)
  Sender: FDA-Public Use
  Company Number: US-JNJFOC-20120800375

PATIENT
  Age: 21 Year
  Sex: Male

DRUGS (4)
  1. CONCERTA [Suspect]
     Indication: ATTENTION DEFICIT/HYPERACTIVITY DISORDER
     Route: 048
     Dates: start: 2012, end: 20120717
  2. CONCERTA [Suspect]
     Indication: ATTENTION DEFICIT/HYPERACTIVITY DISORDER
     Route: 048
     Dates: start: 201206, end: 20120720
  3. CONCERTA [Suspect]
     Indication: ATTENTION DEFICIT/HYPERACTIVITY DISORDER
     Route: 048
     Dates: start: 20120723
  4. CONCERTA [Suspect]
     Indication: ATTENTION DEFICIT/HYPERACTIVITY DISORDER
     Route: 048
     Dates: start: 20120523, end: 2012

REACTIONS (8)
  - Mental status changes [Unknown]
  - Insomnia [Not Recovered/Not Resolved]
  - Unresponsive to stimuli [Unknown]
  - Fatigue [Unknown]
  - Restlessness [Not Recovered/Not Resolved]
  - Unresponsive to stimuli [Unknown]
  - Motor dysfunction [Unknown]
  - Disorientation [Unknown]
